FAERS Safety Report 7424930-1 (Version None)
Quarter: 2011Q2

REPORT INFORMATION
  Report Type: 
  Country: None (occurrence: None)
  Receive Date: 20110419
  Receipt Date: 20080922
  Transmission Date: 20111010
  Serious: Yes (Other)
  Sender: FDA-Public Use
  Company Number: DE-GENENTECH-316997

PATIENT
  Age: 75 Year
  Sex: Male

DRUGS (1)
  1. LUCENTIS [Suspect]
     Indication: MACULAR DEGENERATION
     Route: 031

REACTIONS (10)
  - CONTUSION [None]
  - RASH [None]
  - DRUG INEFFECTIVE [None]
  - VISUAL IMPAIRMENT [None]
  - GLAUCOMA [None]
  - VISUAL ACUITY REDUCED [None]
  - SCAR [None]
  - SKIN CANCER [None]
  - SWELLING [None]
  - VITREOUS DISORDER [None]
